FAERS Safety Report 25684630 (Version 1)
Quarter: 2025Q3

REPORT INFORMATION
  Report Type: Report from Study
  Country: US (occurrence: US)
  Receive Date: 20250815
  Receipt Date: 20250815
  Transmission Date: 20251021
  Serious: Yes (Other)
  Sender: ROCHE
  Company Number: US-ROCHE-10000361535

PATIENT
  Age: 44 Year
  Sex: Female

DRUGS (11)
  1. KADCYLA [Suspect]
     Active Substance: ADO-TRASTUZUMAB EMTANSINE
     Indication: Breast cancer female
     Route: 065
  2. KADCYLA [Suspect]
     Active Substance: ADO-TRASTUZUMAB EMTANSINE
     Indication: Oestrogen receptor assay positive
  3. NEXIUM [Concomitant]
     Active Substance: ESOMEPRAZOLE MAGNESIUM
  4. LIDOCAINE HYDROCHLORIDE [Concomitant]
     Active Substance: LIDOCAINE HYDROCHLORIDE
  5. MAGNESIUM OXIDE [Concomitant]
     Active Substance: MAGNESIUM OXIDE
  6. METHADONE [Concomitant]
     Active Substance: METHADONE HYDROCHLORIDE
  7. NALOXONE [Concomitant]
     Active Substance: NALOXONE
  8. OXYCODONE [Concomitant]
     Active Substance: OXYCODONE
  9. ACETAMINOPHEN [Concomitant]
     Active Substance: ACETAMINOPHEN
  10. PREGABALIN [Concomitant]
     Active Substance: PREGABALIN
  11. TAMOXIFEN [Concomitant]
     Active Substance: TAMOXIFEN

REACTIONS (5)
  - Hypokalaemia [Unknown]
  - Cancer pain [Unknown]
  - Aplastic anaemia [Unknown]
  - Obesity [Unknown]
  - Off label use [Unknown]
